FAERS Safety Report 9893445 (Version 2)
Quarter: 2014Q1

REPORT INFORMATION
  Report Type: Spontaneous
  Country: US (occurrence: US)
  Receive Date: 20140213
  Receipt Date: 20140328
  Transmission Date: 20141002
  Serious: No
  Sender: FDA-Public Use
  Company Number: US-ROXANE LABORATORIES, INC.-2014-RO-00194RO

PATIENT
  Age: 67 Year
  Sex: Male

DRUGS (6)
  1. PREDNISONE [Suspect]
     Indication: EMPHYSEMA
     Dosage: 10 MG
     Route: 048
  2. ALBUTEROL [Concomitant]
     Indication: EMPHYSEMA
     Route: 065
  3. SINGULAR [Concomitant]
     Route: 065
  4. BROVANA [Concomitant]
     Indication: CHRONIC OBSTRUCTIVE PULMONARY DISEASE
     Route: 065
  5. ASPIRIN [Concomitant]
     Dosage: 80 MG
     Route: 065
  6. DOXYCYCLINE [Concomitant]
     Indication: PROPHYLAXIS
     Route: 065

REACTIONS (2)
  - Drug effect decreased [Not Recovered/Not Resolved]
  - Product quality issue [Unknown]
